FAERS Safety Report 18777460 (Version 3)
Quarter: 2021Q2

REPORT INFORMATION
  Report Type: Spontaneous
  Country: US (occurrence: US)
  Receive Date: 20210122
  Receipt Date: 20210513
  Transmission Date: 20210717
  Serious: No
  Sender: FDA-Public Use
  Company Number: US-PFIZER INC-2020387508

PATIENT
  Age: 69 Year
  Sex: Female

DRUGS (3)
  1. IBRANCE [Suspect]
     Active Substance: PALBOCICLIB
     Dosage: 125 MG
  2. IBRANCE [Suspect]
     Active Substance: PALBOCICLIB
     Dosage: 100 MG (FIVE DAYS A WEEK )
  3. IBRANCE [Suspect]
     Active Substance: PALBOCICLIB
     Dosage: 150 MG

REACTIONS (8)
  - Weight decreased [Unknown]
  - Vitamin B12 decreased [Unknown]
  - Off label use [Unknown]
  - Blood count abnormal [Recovering/Resolving]
  - Fatigue [Unknown]
  - Anaemia [Unknown]
  - Neutrophil count decreased [Recovering/Resolving]
  - Blood folate decreased [Unknown]

NARRATIVE: CASE EVENT DATE: 20210428
